FAERS Safety Report 4277047-1 (Version None)
Quarter: 2004Q1

REPORT INFORMATION
  Report Type: 
  Country: None (occurrence: None)
  Receive Date: 20040120
  Receipt Date: 20040108
  Transmission Date: 20041129
  Serious: Yes (Death)
  Sender: FDA-Public Use
  Company Number: 04H-056-0246706-00

PATIENT

DRUGS (1)
  1. ETHRANE [Suspect]
     Indication: ANAESTHESIA
     Dosage: NOT REPORTED, NOT REPORTED; INHALATION
     Route: 055
     Dates: start: 20030101

REACTIONS (1)
  - ANAESTHETIC COMPLICATION [None]
